FAERS Safety Report 7538911-0 (Version None)
Quarter: 2011Q2

REPORT INFORMATION
  Report Type: 
  Country: None (occurrence: None)
  Receive Date: 20110610
  Receipt Date: 20110602
  Transmission Date: 20111010
  Serious: Yes (Other)
  Sender: FDA-Public Use
  Company Number: US-JNJFOC-20110601937

PATIENT
  Sex: Female
  Weight: 80.74 kg

DRUGS (5)
  1. METFORMIN HYDROCHLORIDE [Concomitant]
     Indication: DIABETES MELLITUS
     Route: 048
     Dates: start: 20070101
  2. NORCO [Concomitant]
     Indication: BACK PAIN
     Route: 048
     Dates: start: 20090101
  3. DURAGESIC-100 [Suspect]
     Indication: BACK PAIN
     Dosage: NDC: 50458-0092-05
     Route: 062
     Dates: start: 20100101
  4. LANTUS [Concomitant]
     Indication: DIABETES MELLITUS
     Dosage: 52 UNITS DAILY
     Route: 058
     Dates: start: 20070101
  5. NORCO [Concomitant]
     Indication: ARTHROPATHY
     Route: 048
     Dates: start: 20090101

REACTIONS (8)
  - FIBROMYALGIA [None]
  - MUSCLE SPASMS [None]
  - MALAISE [None]
  - PRODUCT ADHESION ISSUE [None]
  - BLOOD CALCIUM INCREASED [None]
  - HYPERHIDROSIS [None]
  - DRUG DOSE OMISSION [None]
  - CHRONIC OBSTRUCTIVE PULMONARY DISEASE [None]
